FAERS Safety Report 19862523 (Version 1)
Quarter: 2021Q3

REPORT INFORMATION
  Report Type: Spontaneous
  Country: SE (occurrence: SE)
  Receive Date: 20210921
  Receipt Date: 20210921
  Transmission Date: 20211014
  Serious: Yes (Other)
  Sender: FDA-Public Use
  Company Number: SE-MYLANLABS-2021M1063250

PATIENT
  Age: 64 Year
  Sex: Female

DRUGS (4)
  1. BETMIGA [Concomitant]
     Active Substance: MIRABEGRON
     Dosage: 25 MILLIGRAM, QD
  2. MIRTAZAPINE. [Concomitant]
     Active Substance: MIRTAZAPINE
     Dosage: 30 MILLIGRAM, QD
  3. FURADANTIN [Suspect]
     Active Substance: NITROFURANTOIN
     Indication: URINARY TRACT INFECTION
     Dosage: 150 MILLIGRAM, QD
     Dates: start: 20210126, end: 20210204
  4. FURADANTIN [Suspect]
     Active Substance: NITROFURANTOIN
     Dosage: 50 MILLIGRAM, QD
     Dates: start: 20210205, end: 20210316

REACTIONS (1)
  - Interstitial lung disease [Not Recovered/Not Resolved]

NARRATIVE: CASE EVENT DATE: 20210316
